FAERS Safety Report 25994406 (Version 2)
Quarter: 2025Q4

REPORT INFORMATION
  Report Type: Spontaneous
  Country: JP (occurrence: JP)
  Receive Date: 20251104
  Receipt Date: 20251124
  Transmission Date: 20260118
  Serious: Yes (Death)
  Sender: ROCHE
  Company Number: JP-CHUGAI-2025034119

PATIENT
  Age: 77 Year
  Sex: Female
  Weight: 55 kg

DRUGS (5)
  1. PHESGO [Suspect]
     Active Substance: HYALURONIDASE-ZZXF\PERTUZUMAB\TRASTUZUMAB
     Indication: HER2 positive breast cancer
     Dosage: UNK
     Route: 058
     Dates: start: 20251003, end: 20251003
  2. BEZAFIBRATE [Concomitant]
     Active Substance: BEZAFIBRATE
  3. BISOPROLOL FUMARATE [Concomitant]
     Active Substance: BISOPROLOL FUMARATE
  4. TRICHLORMETHIAZIDE [Concomitant]
     Active Substance: TRICHLORMETHIAZIDE
  5. PREDONINE [Concomitant]
     Active Substance: PREDNISOLONE
     Dates: start: 20251025

REACTIONS (3)
  - Interstitial lung disease [Fatal]
  - Cardiomyopathy [Fatal]
  - Off label use [Unknown]

NARRATIVE: CASE EVENT DATE: 20251007
